FAERS Safety Report 7995826-1 (Version None)
Quarter: 2011Q4

REPORT INFORMATION
  Report Type: 
  Country: None (occurrence: None)
  Receive Date: 20111216
  Receipt Date: 20111202
  Transmission Date: 20120403
  Serious: Yes (Other)
  Sender: FDA-Public Use
  Company Number: 2011SP057293

PATIENT
  Age: 53 Year
  Sex: Female

DRUGS (2)
  1. PEG-INTRON [Suspect]
     Indication: HEPATITIS C
     Dates: start: 20111111
  2. RIBAVIRIN [Suspect]
     Indication: HEPATITIS C
     Dates: start: 20111111

REACTIONS (14)
  - DIZZINESS [None]
  - DEPRESSION [None]
  - MUSCLE SPASMS [None]
  - PAIN [None]
  - DRY MOUTH [None]
  - GLOSSODYNIA [None]
  - AMNESIA [None]
  - EATING DISORDER [None]
  - NAUSEA [None]
  - HEPATIC PAIN [None]
  - INFLUENZA LIKE ILLNESS [None]
  - WEIGHT DECREASED [None]
  - AGGRESSION [None]
  - DYSPNOEA [None]
